FAERS Safety Report 19730193 (Version 2)
Quarter: 2022Q4

REPORT INFORMATION
  Report Type: Report from Study
  Country: CA (occurrence: CA)
  Receive Date: 20210820
  Receipt Date: 20221020
  Transmission Date: 20230112
  Serious: Yes (Other)
  Sender: FDA-Public Use
  Company Number: CA-NOVARTISPH-NVSC2020CA303607

PATIENT
  Sex: Male

DRUGS (2)
  1. LUCENTIS [Suspect]
     Active Substance: RANIBIZUMAB
     Indication: Diabetic retinal oedema
     Dosage: 10 MILLIGRAM PER MILLILITRE ((RIGHT EYE))
     Route: 042
     Dates: start: 201606
  2. BEOVU [Suspect]
     Active Substance: BROLUCIZUMAB-DBLL
     Indication: Neovascular age-related macular degeneration
     Dosage: UNK (STARTED IN 06 NOV, YEAR NOT REPORTED)
     Route: 031

REACTIONS (3)
  - Diabetic retinal oedema [Unknown]
  - Disease progression [Unknown]
  - Neovascular age-related macular degeneration [Unknown]
